FAERS Safety Report 8876558 (Version 1)
Quarter: 2012Q4

REPORT INFORMATION
  Report Type: 
  Country: US (occurrence: US)
  Receive Date: 20121023
  Receipt Date: 20121023
  Transmission Date: 20130627
  Serious: No
  Sender: FDA-Public Use
  Company Number: US-ASTELLAS-2012US002606

PATIENT
  Age: 62 Year
  Sex: Male
  Weight: 113 kg

DRUGS (3)
  1. PROGRAF [Suspect]
     Indication: RENAL TRANSPLANT
     Dosage: 3 mg, bid
     Route: 048
  2. PREDNISONE [Concomitant]
     Indication: RENAL TRANSPLANT
     Dosage: 10 mg, qod
     Route: 048
     Dates: start: 19871106
  3. LAMICTAL [Concomitant]
     Indication: AFFECTIVE DISORDER
     Dosage: 100 mg, bid
     Route: 048

REACTIONS (4)
  - Fall [Recovered/Resolved]
  - Ligament sprain [Recovered/Resolved]
  - Contusion [Recovered/Resolved]
  - Fracture [Recovered/Resolved]
